FAERS Safety Report 14754914 (Version 2)
Quarter: 2018Q2

REPORT INFORMATION
  Report Type: Report from Study
  Country: None (occurrence: CO)
  Receive Date: 20180413
  Receipt Date: 20180430
  Transmission Date: 20180711
  Serious: Yes (Other)
  Sender: FDA-Public Use
  Company Number: CO-ABBVIE-18K-036-2321147-00

PATIENT
  Age: 16 Year
  Sex: Male

DRUGS (2)
  1. SULFASALAZINE. [Concomitant]
     Active Substance: SULFASALAZINE
     Indication: PRODUCT USED FOR UNKNOWN INDICATION
  2. HUMIRA [Suspect]
     Active Substance: ADALIMUMAB
     Indication: JUVENILE IDIOPATHIC ARTHRITIS
     Route: 058
     Dates: start: 20170124, end: 20180228

REACTIONS (3)
  - Limb injury [Not Recovered/Not Resolved]
  - Amputation [Recovering/Resolving]
  - Finger amputation [Not Recovered/Not Resolved]

NARRATIVE: CASE EVENT DATE: 20180406
